FAERS Safety Report 15104693 (Version 2)
Quarter: 2018Q3

REPORT INFORMATION
  Report Type: Report from Study
  Country: MX (occurrence: MX)
  Receive Date: 20180703
  Receipt Date: 20180705
  Transmission Date: 20181010
  Serious: Yes (Death)
  Sender: FDA-Public Use
  Company Number: PHHY2018MX035709

PATIENT
  Age: 90 Year
  Sex: Female
  Weight: 66 kg

DRUGS (4)
  1. CO?DIOVAN [Suspect]
     Active Substance: HYDROCHLOROTHIAZIDE\VALSARTAN
     Indication: HYPERTENSION
     Dosage: 1 DF(HYDROCHLOROTHIAZIDE 12.5MG, VALSARTAN 80MG), QD
     Route: 048
     Dates: start: 20170601, end: 20180625
  2. TEGRETOL [Suspect]
     Active Substance: CARBAMAZEPINE
     Indication: ORAL PAIN
     Dosage: 2 DF, QD
     Route: 048
     Dates: start: 20160601, end: 20180625
  3. OMEPRAZOLE. [Concomitant]
     Active Substance: OMEPRAZOLE
     Indication: GASTRITIS
     Dosage: 1 DF, QD (20 YEARS AGO)
     Route: 048
     Dates: end: 20180625
  4. ACARBOSA [Concomitant]
     Indication: DIABETES MELLITUS
     Dosage: 1 DF, Q12H (20 YEARS AGO)
     Route: 048
     Dates: end: 20180625

REACTIONS (2)
  - Product use in unapproved indication [Unknown]
  - Respiratory acidosis [Fatal]

NARRATIVE: CASE EVENT DATE: 20160601
